FAERS Safety Report 8003270-6 (Version None)
Quarter: 2011Q4

REPORT INFORMATION
  Report Type: 
  Country: None (occurrence: None)
  Receive Date: 20111222
  Receipt Date: 20111219
  Transmission Date: 20120403
  Serious: Yes (Death)
  Sender: FDA-Public Use
  Company Number: PHEH2011US012036

PATIENT
  Sex: Female

DRUGS (4)
  1. ZOMETA [Suspect]
  2. ANTIHYPERTENSIVES [Concomitant]
  3. DRUG USED IN DIABETES [Concomitant]
  4. WATER PILLS [Concomitant]

REACTIONS (1)
  - DEATH [None]
